FAERS Safety Report 4965800-8 (Version None)
Quarter: 2006Q2

REPORT INFORMATION
  Report Type: 
  Country: None (occurrence: None)
  Receive Date: 20060406
  Receipt Date: 20060406
  Transmission Date: 20061013
  Serious: Yes (Hospitalization)
  Sender: FDA-Public Use
  Company Number: None

PATIENT
  Age: 74 Year
  Sex: Female
  Weight: 76 kg

DRUGS (2)
  1. FARESTON [Suspect]
     Indication: BREAST CANCER
     Dosage: 60 MG QDAY PO
     Route: 048
     Dates: start: 20010815, end: 20050615
  2. FOSAMAX [Concomitant]

REACTIONS (2)
  - CAROTID ARTERY ANEURYSM [None]
  - SUBARACHNOID HAEMORRHAGE [None]
